FAERS Safety Report 4769003-1 (Version None)
Quarter: 2005Q3

REPORT INFORMATION
  Report Type: 
  Country: None (occurrence: None)
  Receive Date: 20050913
  Receipt Date: 20050901
  Transmission Date: 20060218
  Serious: Yes (Other)
  Sender: FDA-Public Use
  Company Number: 2005123547

PATIENT
  Age: 51 Year
  Sex: Female

DRUGS (7)
  1. GABAPENTIN [Suspect]
     Indication: PAIN
     Dosage: ORAL
     Route: 048
     Dates: start: 20050720, end: 20050726
  2. TRAMADOL HCL [Concomitant]
  3. LACTULOSE [Concomitant]
  4. ALL OTHER THERAPEUTIC PRODUCTS (ALL OTHER THERAPEUTIC PRODUCTS) [Concomitant]
  5. ACETAMINOPHEN W/ CODEINE [Concomitant]
  6. AMITRIPTYLINE HCL [Concomitant]
  7. ALTACITE (HYDROTALCITE) [Concomitant]

REACTIONS (1)
  - POSTMENOPAUSAL HAEMORRHAGE [None]
